FAERS Safety Report 16562732 (Version 2)
Quarter: 2019Q3

REPORT INFORMATION
  Report Type: Report from Study
  Country: GB (occurrence: GB)
  Receive Date: 20190711
  Receipt Date: 20190729
  Transmission Date: 20191004
  Serious: Yes (Death, Hospitalization)
  Sender: FDA-Public Use
  Company Number: GB-MYLANLABS-2019M1064562

PATIENT
  Age: 71 Year
  Sex: Female

DRUGS (1)
  1. DOXORUBICIN [Suspect]
     Active Substance: DOXORUBICIN
     Indication: OVARIAN CANCER
     Dosage: UNK UNK, CYCLE (4 WEEKLY)
     Route: 042
     Dates: start: 20170123, end: 20170321

REACTIONS (2)
  - Neoplasm progression [Fatal]
  - Sepsis [Unknown]

NARRATIVE: CASE EVENT DATE: 20170504
